FAERS Safety Report 7998511-5 (Version None)
Quarter: 2011Q4

REPORT INFORMATION
  Report Type: 
  Country: None (occurrence: None)
  Receive Date: 20111221
  Receipt Date: 20111213
  Transmission Date: 20120403
  Serious: Yes (Hospitalization)
  Sender: FDA-Public Use
  Company Number: JP-JNJFOC-20080906514

PATIENT
  Sex: Male
  Weight: 74 kg

DRUGS (9)
  1. IMURAN [Suspect]
     Indication: COLITIS ULCERATIVE
     Route: 048
     Dates: start: 20040501
  2. SULFASALAZINE [Concomitant]
     Indication: COLITIS ULCERATIVE
     Route: 048
  3. INFLIXIMAB, RECOMBINANT [Suspect]
     Indication: COLITIS ULCERATIVE
     Dosage: TOTAL OF 5 INFUSIONS ADMINISTERED
     Route: 042
     Dates: start: 20070314
  4. SESDEN [Concomitant]
     Indication: COLITIS ULCERATIVE
     Route: 048
  5. INFLIXIMAB, RECOMBINANT [Suspect]
     Route: 042
     Dates: start: 20070117
  6. INFLIXIMAB, RECOMBINANT [Suspect]
     Route: 042
     Dates: start: 20061011
  7. INFLIXIMAB, RECOMBINANT [Suspect]
     Route: 042
     Dates: start: 20061025
  8. INFLIXIMAB, RECOMBINANT [Suspect]
     Route: 042
     Dates: start: 20061122
  9. PREDNISOLONE [Concomitant]
     Indication: COLITIS ULCERATIVE
     Route: 048

REACTIONS (1)
  - COLON CANCER [None]
